FAERS Safety Report 6875983-0 (Version None)
Quarter: 2010Q3

REPORT INFORMATION
  Report Type: 
  Country: None (occurrence: None)
  Receive Date: 20100727
  Receipt Date: 20070702
  Transmission Date: 20110219
  Serious: Yes (Hospitalization, Other)
  Sender: FDA-Public Use
  Company Number: US-PFIZER INC-2006149813

PATIENT
  Sex: Female
  Weight: 80.3 kg

DRUGS (2)
  1. CELEBREX [Suspect]
     Indication: ARTHRITIS
     Route: 048
     Dates: start: 20010228, end: 20010901
  2. VIOXX [Suspect]
     Indication: ARTHRITIS
     Route: 048
     Dates: start: 20010112, end: 20010730

REACTIONS (1)
  - MYOCARDIAL INFARCTION [None]
